FAERS Safety Report 23531003 (Version 1)
Quarter: 2024Q1

REPORT INFORMATION
  Report Type: Spontaneous
  Country: PL (occurrence: None)
  Receive Date: 20240216
  Receipt Date: 20240216
  Transmission Date: 20240409
  Serious: Yes (Hospitalization, Disabling)
  Sender: FDA-Public Use
  Company Number: None

PATIENT
  Age: 60 Year
  Sex: Male
  Weight: 93 kg

DRUGS (4)
  1. TOCILIZUMAB [Suspect]
     Active Substance: TOCILIZUMAB
     Indication: Rheumatoid arthritis
     Dosage: 8 MG/KG BODY WEIGHT; 4 DOSES IN TOTAL
     Route: 042
     Dates: start: 20190314, end: 201906
  2. TOCILIZUMAB [Suspect]
     Active Substance: TOCILIZUMAB
     Dosage: 8 MG/KG BODY WEIGHT; 4 DOSES IN TOTAL
     Route: 042
     Dates: start: 20190314, end: 201906
  3. PREDNISONE [Concomitant]
     Active Substance: PREDNISONE
     Indication: Interstitial lung disease
     Dates: end: 20190730
  4. AZATHIOPRINE [Concomitant]
     Active Substance: AZATHIOPRINE
     Indication: Interstitial lung disease
     Dosage: ONGOING THERAPY
     Dates: start: 20150223

REACTIONS (1)
  - Interstitial lung disease [Recovering/Resolving]
